FAERS Safety Report 10504988 (Version 1)
Quarter: 2014Q3

REPORT INFORMATION
  Report Type: Spontaneous
  Country: US (occurrence: None)
  Receive Date: 20140926
  Receipt Date: 20140926
  Transmission Date: 20150326
  Serious: No
  Sender: FDA-Public Use
  Company Number: 1000069040

PATIENT
  Sex: Male

DRUGS (1)
  1. LINZESS [Suspect]
     Active Substance: LINACLOTIDE
     Dosage: 870MCG (290 MICROGRAM, CAPSULES)
     Route: 048
     Dates: start: 20140715, end: 20140715

REACTIONS (2)
  - Accidental overdose [None]
  - Dizziness [None]

NARRATIVE: CASE EVENT DATE: 20140715
